FAERS Safety Report 5579249-0 (Version None)
Quarter: 2008Q1

REPORT INFORMATION
  Report Type: 
  Country: None (occurrence: None)
  Receive Date: 20080102
  Receipt Date: 20071221
  Transmission Date: 20080703
  Serious: Yes (Hospitalization)
  Sender: FDA-Public Use
  Company Number: US-KINGPHARMUSA00001-K200701639

PATIENT

DRUGS (13)
  1. ALTACE [Suspect]
     Indication: HYPERTENSION
     Dosage: 10 MG, QD
     Route: 048
     Dates: start: 20030101, end: 20070926
  2. ALTACE [Suspect]
     Dosage: 2.5 MG, QD
     Route: 048
     Dates: start: 20070926
  3. LASIX [Suspect]
     Indication: HYPERTENSION
     Dosage: 80 MG, QD
     Route: 048
     Dates: start: 20030101, end: 20070926
  4. ATACAND [Suspect]
     Indication: HYPERTENSION
     Dosage: 20 MG, QD
     Route: 048
     Dates: start: 20030101, end: 20070926
  5. CARDENSIEL [Concomitant]
     Dosage: 10 MG, QD
     Route: 048
  6. AMLOR [Concomitant]
     Dosage: 10 MG, QD
     Route: 048
  7. TAHOR [Concomitant]
     Dosage: 20 MG, QD
     Route: 048
  8. KARDEGIC /00002703/ [Concomitant]
     Dosage: 75 MG, QD
  9. KAYEXALATE [Concomitant]
     Dosage: 1580 MG, QD
     Route: 048
  10. ZYLORIC /00003301/ [Concomitant]
     Dosage: 200 MG, QD
     Route: 048
  11. RENAGEL /01459901/ [Concomitant]
     Route: 048
  12. MIXTARD HUMAN 70/30 [Concomitant]
     Dosage: 1000 IU/ML, UNK
     Route: 058
  13. LANTUS [Concomitant]
     Dosage: 28 IU, QD
     Route: 058

REACTIONS (8)
  - BLOOD CREATININE INCREASED [None]
  - BLOOD UREA INCREASED [None]
  - DIARRHOEA [None]
  - DRUG INTERACTION [None]
  - GASTROINTESTINAL DISORDER [None]
  - HYPERKALAEMIA [None]
  - RENAL FAILURE ACUTE [None]
  - VOMITING [None]
